FAERS Safety Report 7227995-5 (Version None)
Quarter: 2011Q1

REPORT INFORMATION
  Report Type: 
  Country: None (occurrence: None)
  Receive Date: 20110111
  Receipt Date: 20110111
  Transmission Date: 20110831
  Serious: Yes (Hospitalization)
  Sender: FDA-Public Use
  Company Number: None

PATIENT
  Sex: Male
  Weight: 65.7716 kg

DRUGS (3)
  1. DARVON-N [Suspect]
     Indication: PAIN
     Dosage: 1 TAB 4-6H PRN PAIN PO
     Route: 048
     Dates: start: 20091101
  2. PROPOXYPHENE HCL AND ACETAMINOPHEN [Suspect]
     Indication: PAIN
     Dosage: 1 TAB BID PO
     Route: 048
     Dates: end: 20101101
  3. DARVON-N [Suspect]
     Dosage: 1 TAB 246 PRN PAIN PO
     Route: 048
     Dates: start: 20091101

REACTIONS (3)
  - DIZZINESS [None]
  - AMNESIA [None]
  - LOSS OF CONSCIOUSNESS [None]
